FAERS Safety Report 15984351 (Version 1)
Quarter: 2019Q1

REPORT INFORMATION
  Report Type: Report from Study
  Country: CA (occurrence: CA)
  Receive Date: 20190220
  Receipt Date: 20190220
  Transmission Date: 20190418
  Serious: Yes (Death)
  Sender: FDA-Public Use
  Company Number: CA-ROCHE-2263166

PATIENT
  Age: 76 Year
  Sex: Male

DRUGS (12)
  1. CALCIUM CARBONATE. [Concomitant]
     Active Substance: CALCIUM CARBONATE
  2. BURINEX [Concomitant]
     Active Substance: BUMETANIDE
  3. MOXIFLOXACIN. [Concomitant]
     Active Substance: MOXIFLOXACIN
     Dosage: TABLET DAILY X7 DAYS (ENDING 20-JAN-2019)
     Route: 065
     Dates: end: 20190120
  4. RISEDRONATE [Concomitant]
     Active Substance: RISEDRONATE SODIUM
  5. PREDNISONE. [Concomitant]
     Active Substance: PREDNISONE
     Dosage: REDUCING BY 5MG/WEEK
     Route: 048
  6. SEPTRA [Concomitant]
     Active Substance: SULFAMETHOXAZOLE\TRIMETHOPRIM
     Dosage: 1 DS (DIOPTER SPHERE)
     Route: 065
  7. ESBRIET [Suspect]
     Active Substance: PIRFENIDONE
     Indication: IDIOPATHIC PULMONARY FIBROSIS
     Route: 048
     Dates: start: 20190204, end: 20190207
  8. TAMSULOSIN [Concomitant]
     Active Substance: TAMSULOSIN
  9. ATORVASTATIN [Concomitant]
     Active Substance: ATORVASTATIN
  10. RABEPRAZOLE [Concomitant]
     Active Substance: RABEPRAZOLE
  11. ZYLOPRIM [Concomitant]
     Active Substance: ALLOPURINOL
  12. LEVOTHYROXINE. [Concomitant]
     Active Substance: LEVOTHYROXINE

REACTIONS (6)
  - Syncope [Fatal]
  - Haemoptysis [Fatal]
  - Diarrhoea [Fatal]
  - Fall [Fatal]
  - Drug ineffective [Unknown]
  - Dyspnoea [Fatal]

NARRATIVE: CASE EVENT DATE: 20190204
